FAERS Safety Report 12430299 (Version 3)
Quarter: 2016Q4

REPORT INFORMATION
  Report Type: Spontaneous
  Country: US (occurrence: US)
  Receive Date: 20160602
  Receipt Date: 20161020
  Transmission Date: 20170207
  Serious: Yes (Other)
  Sender: FDA-Public Use
  Company Number: US-GLAXOSMITHKLINE-US2016078757

PATIENT
  Age: 76 Year
  Sex: Male

DRUGS (6)
  1. FLOVENT HFA [Suspect]
     Active Substance: FLUTICASONE PROPIONATE
     Indication: ASTHMA
     Dosage: 44 MCG
     Route: 055
  2. BREO ELLIPTA [Suspect]
     Active Substance: FLUTICASONE FUROATE\VILANTEROL TRIFENATATE
     Indication: CHEST DISCOMFORT
     Dosage: 1 PUFF(S), 1D
     Route: 055
     Dates: start: 201605
  3. BREO ELLIPTA [Suspect]
     Active Substance: FLUTICASONE FUROATE\VILANTEROL TRIFENATATE
     Indication: LOWER RESPIRATORY TRACT CONGESTION
     Dosage: 1 PUFF(S), 1D
     Route: 055
     Dates: start: 201610
  4. FLONASE [Suspect]
     Active Substance: FLUTICASONE PROPIONATE
     Indication: MULTIPLE ALLERGIES
     Dosage: 2 DF, QD
     Route: 045
  5. MAXAIR INHALER [Concomitant]
  6. BREO ELLIPTA [Suspect]
     Active Substance: FLUTICASONE FUROATE\VILANTEROL TRIFENATATE
     Indication: WHEEZING
     Dosage: 1 PUFF(S), 1D
     Route: 055
     Dates: start: 201604

REACTIONS (4)
  - Cataract [Recovered/Resolved]
  - Dysphonia [Not Recovered/Not Resolved]
  - Glaucoma [Unknown]
  - Intraocular pressure increased [Recovered/Resolved]

NARRATIVE: CASE EVENT DATE: 201604
